FAERS Safety Report 24065561 (Version 1)
Quarter: 2024Q3

REPORT INFORMATION
  Report Type: Spontaneous
  Country: US (occurrence: US)
  Receive Date: 20240709
  Receipt Date: 20240709
  Transmission Date: 20241016
  Serious: No
  Sender: PFIZER
  Company Number: US-PFIZER INC-202400208867

PATIENT
  Sex: Female

DRUGS (1)
  1. XELJANZ XR [Suspect]
     Active Substance: TOFACITINIB CITRATE

REACTIONS (1)
  - Acne [Not Recovered/Not Resolved]

NARRATIVE: CASE EVENT DATE: 20240101
